FAERS Safety Report 26072575 (Version 2)
Quarter: 2025Q4

REPORT INFORMATION
  Report Type: Report from Study
  Country: CH (occurrence: CH)
  Receive Date: 20251120
  Receipt Date: 20251202
  Transmission Date: 20260117
  Serious: Yes (Hospitalization)
  Sender: ABBVIE
  Company Number: CH-ABBVIE-6521777

PATIENT
  Age: 75 Year
  Sex: Male

DRUGS (4)
  1. CARBIDOPA\LEVODOPA [Suspect]
     Active Substance: CARBIDOPA\LEVODOPA
     Indication: Parkinson^s disease
     Dosage: MD 10.0ML, CRD 3.2ML/H, ED 2.0ML, LAST ADMIN DATE: OCT 2025
     Route: 050
     Dates: start: 20251014
  2. CARBIDOPA\LEVODOPA [Suspect]
     Active Substance: CARBIDOPA\LEVODOPA
     Dosage: DOSE REDUCED TO 2.5 ML/H, FIRST ADMIN DATE: OCT 2025, LAST ADMIN DATE: OCT 2025
     Route: 050
  3. CARBIDOPA\LEVODOPA [Suspect]
     Active Substance: CARBIDOPA\LEVODOPA
     Dosage: DOSE INCREASED TO 3.5 ML/H ,FIRST ADMIN DATE: OCT 2025
     Route: 050
     Dates: end: 20251030
  4. CARBIDOPA\LEVODOPA [Suspect]
     Active Substance: CARBIDOPA\LEVODOPA
     Dosage: 4.9 ML/H, FIRST ADMIN DATE: OCT 2025, LAST ADMIN DATE: OCT 2025
     Route: 050

REACTIONS (15)
  - Pyelonephritis [Unknown]
  - Agitation [Unknown]
  - Akinesia [Recovering/Resolving]
  - Intentional medical device removal by patient [Unknown]
  - Confusional state [Not Recovered/Not Resolved]
  - Hallucination [Not Recovered/Not Resolved]
  - Nephrolithiasis [Unknown]
  - Device dislocation [Recovered/Resolved]
  - Tremor [Unknown]
  - Incorrect route of product administration [Unknown]
  - Pyrexia [Unknown]
  - SARS-CoV-2 test positive [Unknown]
  - Urinary tract infection [Unknown]
  - Aggression [Not Recovered/Not Resolved]
  - Infection [Recovered/Resolved]

NARRATIVE: CASE EVENT DATE: 20251001
